FAERS Safety Report 4592774-4 (Version None)
Quarter: 2005Q1

REPORT INFORMATION
  Report Type: 
  Country: None (occurrence: None)
  Receive Date: 20050222
  Receipt Date: 20050118
  Transmission Date: 20050727
  Serious: Yes (Disabling)
  Sender: FDA-Public Use
  Company Number: 9834

PATIENT
  Age: 26 Year
  Sex: Female

DRUGS (14)
  1. METHOTREXATE [Suspect]
     Indication: BONE SARCOMA
     Dosage: 13.6 G IV
     Route: 042
     Dates: start: 20040628, end: 20040628
  2. METHOTREXATE [Suspect]
     Indication: BONE SARCOMA
     Dosage: 13.6 G IV
     Route: 042
     Dates: start: 20040726, end: 20040726
  3. METHOTREXATE [Suspect]
     Indication: BONE SARCOMA
     Dosage: 13.6 G IV
     Route: 042
     Dates: start: 20040809, end: 20040809
  4. METHOTREXATE [Suspect]
     Indication: BONE SARCOMA
     Dosage: 13.6 G IV
     Route: 042
     Dates: start: 20040913, end: 20040913
  5. METHOTREXATE [Suspect]
     Indication: BONE SARCOMA
     Dosage: 13.6 G IV
     Route: 042
     Dates: start: 20040927, end: 20040927
  6. METHOTREXATE [Suspect]
     Indication: BONE SARCOMA
     Dosage: 13.6 G IV
     Route: 042
     Dates: start: 20041012, end: 20041012
  7. METHOTREXATE [Suspect]
     Indication: BONE SARCOMA
     Dosage: 13.6 G IV
     Route: 042
     Dates: start: 20041025, end: 20041025
  8. LEUCOVORIN CALCIUM [Concomitant]
  9. ONDANSETRON HYDROCHLORIDE [Concomitant]
  10. DEXAMETHASONE SODIUM PHOSPHATE [Concomitant]
  11. ACETAZOLAMIDE SODIUM [Concomitant]
  12. CIMETIDINE [Concomitant]
  13. AMINOACETIC ACID/GLYCYRRHIZIC ACID [Concomitant]
  14. METHYLENE BLUE [Concomitant]

REACTIONS (9)
  - HALLUCINATION [None]
  - HEADACHE [None]
  - MUSCULAR WEAKNESS [None]
  - PAIN IN EXTREMITY [None]
  - PERONEAL NERVE PALSY [None]
  - POLYNEUROPATHY [None]
  - QUADRIPLEGIA [None]
  - SOMNOLENCE [None]
  - STUPOR [None]
